FAERS Safety Report 7958595-7 (Version None)
Quarter: 2011Q4

REPORT INFORMATION
  Report Type: 
  Country: None (occurrence: None)
  Receive Date: 20111206
  Receipt Date: 20111201
  Transmission Date: 20120403
  Serious: No
  Sender: FDA-Public Use
  Company Number: US-BIOGENIDEC-2011BI045500

PATIENT
  Age: 46 Year
  Sex: Male

DRUGS (1)
  1. TYSABRI [Suspect]
     Indication: MULTIPLE SCLEROSIS
     Route: 042
     Dates: start: 20111130

REACTIONS (5)
  - ERYTHEMA [None]
  - PRURITUS [None]
  - HYPOAESTHESIA ORAL [None]
  - EXOPHTHALMOS [None]
  - PHARYNGEAL OEDEMA [None]
